APPROVED DRUG PRODUCT: DIPYRIDAMOLE
Active Ingredient: DIPYRIDAMOLE
Strength: 5MG/ML
Dosage Form/Route: INJECTABLE;INJECTION
Application: A074939 | Product #001 | TE Code: AP
Applicant: CHARTWELL INJECTABLES LLC
Approved: Apr 13, 1998 | RLD: No | RS: Yes | Type: RX